FAERS Safety Report 4482175-1 (Version None)
Quarter: 2004Q4

REPORT INFORMATION
  Report Type: 
  Country: None (occurrence: None)
  Receive Date: 20041020
  Receipt Date: 20041007
  Transmission Date: 20050328
  Serious: Yes (Other)
  Sender: FDA-Public Use
  Company Number: 239722

PATIENT
  Sex: Female

DRUGS (2)
  1. NOVORAPID (INSULIN ASPART) SOLUTION FOR INJECTION, 100U/ML [Suspect]
     Indication: ILL-DEFINED DISORDER
     Dosage: SUBCUTAN.-PUMP
     Route: 058
  2. HUMALOG [Concomitant]

REACTIONS (3)
  - BLOOD GLUCOSE INCREASED [None]
  - CARDIAC ARREST [None]
  - DRUG INEFFECTIVE [None]
